FAERS Safety Report 21789096 (Version 2)
Quarter: 2023Q1

REPORT INFORMATION
  Report Type: Spontaneous
  Country: JP (occurrence: JP)
  Receive Date: 20221228
  Receipt Date: 20230131
  Transmission Date: 20230417
  Serious: Yes (Other)
  Sender: FDA-Public Use
  Company Number: JP-SA-SAC20221226001173

PATIENT
  Age: 74 Year
  Sex: Male

DRUGS (1)
  1. AVAPRO [Suspect]
     Active Substance: IRBESARTAN
     Indication: Hypertension
     Dosage: 50 MG, QD
     Route: 048

REACTIONS (9)
  - Scleroderma renal crisis [Recovering/Resolving]
  - Renal impairment [Recovering/Resolving]
  - Scleroderma [Recovering/Resolving]
  - Systemic scleroderma [Recovering/Resolving]
  - Proteinuria [Recovering/Resolving]
  - Oedematous kidney [Recovering/Resolving]
  - Renal artery stenosis [Recovering/Resolving]
  - Raynaud^s phenomenon [Recovering/Resolving]
  - Haematuria [Recovering/Resolving]
